FAERS Safety Report 11052266 (Version 1)
Quarter: 2015Q2

REPORT INFORMATION
  Report Type: Report from Study
  Country: BR (occurrence: BR)
  Receive Date: 20150421
  Receipt Date: 20150421
  Transmission Date: 20150821
  Serious: Yes (Hospitalization, Other)
  Sender: FDA-Public Use
  Company Number: PHHY2015BR044803

PATIENT
  Sex: Female

DRUGS (5)
  1. EXELON PATCH [Suspect]
     Active Substance: RIVASTIGMINE
     Dosage: PATCH 5 (CM2) OR CONTAINS 9 MG RIVASTIGMINE BASE (FROM 2 MONTHS AGO TO LAST TUESDAY)
     Route: 062
  2. EXELON PATCH [Suspect]
     Active Substance: RIVASTIGMINE
     Indication: DEMENTIA ALZHEIMER^S TYPE
     Dosage: PATCH 5 (CM2) OR CONTAINS 9 MG RIVASTIGMINE BASE
     Route: 062
  3. EXELON PATCH [Suspect]
     Active Substance: RIVASTIGMINE
     Dosage: PATCH 10 (CM2) OR CONTAINS 18 MG RIVASTIGMINE BASE
     Route: 062
  4. EXELON PATCH [Suspect]
     Active Substance: RIVASTIGMINE
     Dosage: PATCH 10 (CM2) OR CONTAINS 18 MG RIVASTIGMINE BASE (WEDNESDAY TO THURSDAY)
     Route: 062
  5. EXELON PATCH [Suspect]
     Active Substance: RIVASTIGMINE
     Dosage: PATCH 5 (CM2) OR CONTAINS 9 MG RIVASTIGMINE BASE
     Route: 062

REACTIONS (3)
  - General physical health deterioration [Not Recovered/Not Resolved]
  - Malaise [Not Recovered/Not Resolved]
  - Senile dementia [Not Recovered/Not Resolved]
